FAERS Safety Report 11078841 (Version 1)
Quarter: 2015Q2

REPORT INFORMATION
  Report Type: Spontaneous
  Country: NL (occurrence: NL)
  Receive Date: 20150430
  Receipt Date: 20150430
  Transmission Date: 20150821
  Serious: Yes (Death)
  Sender: FDA-Public Use
  Company Number: NL-TEVA-557363ISR

PATIENT

DRUGS (22)
  1. UROMITEXAN INJVLST 100MG/ML AMPUL 10ML [Concomitant]
     Dosage: 150 MILLIGRAM DAILY;
     Route: 042
  2. FRAXIPARINE INJVLST 9500IE/ML WWSP 0,3ML [Concomitant]
     Dosage: 2850 IU (INTERNATIONAL UNIT) DAILY;
     Route: 058
  3. DOXORUBICINE INJVLST 2MG/ML [Suspect]
     Active Substance: DOXORUBICIN
     Indication: EWING^S SARCOMA
     Dosage: 2 CYCLES OF 3 WEEKS IN BETWEEN
     Route: 042
     Dates: start: 20150220
  4. CLONIDINE HYDROCHLORIDE. [Concomitant]
     Active Substance: CLONIDINE HYDROCHLORIDE
     Dosage: 150 MICROGRAM DAILY;
     Route: 048
  5. LYRICA [Concomitant]
     Active Substance: PREGABALIN
     Dosage: 150 MILLIGRAM DAILY;
     Route: 048
  6. PARACETAMOL ZETPIL 1000MG [Concomitant]
     Dosage: 3000 MILLIGRAM DAILY;
     Route: 054
  7. VINCRISTINE INJVLST 1MG/ML [Suspect]
     Active Substance: VINCRISTINE
     Indication: EWING^S SARCOMA
     Dosage: 2 COURSES VIDE (VINCRISTINE, IFOSFAMIDE, DOXORUBICIN, ETOPOSIDE) WITH 3 WEEKS IN BETWEEN
     Route: 042
     Dates: start: 20150220
  8. ETOPOSIDE INFUUS [Suspect]
     Active Substance: ETOPOSIDE
     Indication: EWING^S SARCOMA
     Dosage: 2 CYCLES OF 3 WEEKS IN BETWEEN
     Route: 042
     Dates: start: 20150220
  9. IFOSFAMIDE INFUUS [Suspect]
     Active Substance: IFOSFAMIDE
     Indication: EWING^S SARCOMA
     Dosage: 2 COURSES VIDE WITH 3 WEEKS IN BETWEEN
     Route: 042
     Dates: start: 20150220
  10. ONDANSETRON INJVLST 2MG/ML [Concomitant]
     Dosage: 16 MILLIGRAM DAILY;
     Route: 042
  11. ZOFRAN ZYDIS SMELTTABLET 8MG [Concomitant]
     Dosage: 16 MILLIGRAM DAILY; ORODISPERSIBLE TABLET
     Route: 048
  12. DEXAMETHASON [Concomitant]
     Active Substance: DEXAMETHASONE
     Dosage: DAILY DOSE AS NECESSARY INJ + DEXAMETHASONE 4MG / ML AMP 1
     Route: 048
  13. OMEPRAZOL TABLET MGA 20MG [Concomitant]
     Dosage: 10 MILLIGRAM DAILY;
     Route: 048
  14. FUROSEMIDE INFVLST 10MG/ML [Concomitant]
     Dosage: 10 MILLIGRAM DAILY;
     Route: 042
  15. ABSTRAL TABLET SUBLINGUAAL 200MCG [Concomitant]
     Dosage: IF NECESSARY, SUBLINGUAL TABLET
     Route: 060
  16. EMEND CAPSULE  80MG [Concomitant]
     Dosage: 1DD80MG + EMEND CAPS 125 MG, SINGLE, 125 MG
     Route: 048
  17. FENTANYL PLEISTER   75UG/UUR (RESERVOIR) [Concomitant]
     Dosage: 1XPER 3 DAYS
     Route: 062
  18. COLECALCIFEROL DRUPPELS  3.000IE/ML [Concomitant]
     Dosage: 10 IU (INTERNATIONAL UNIT) DAILY;
     Route: 048
  19. CYCLOFOSFAMIDE INJECTIE/INFUUS [Concomitant]
     Active Substance: CYCLOPHOSPHAMIDE
     Dosage: ONCE 2300MG
     Route: 042
  20. LORAZEPAM TABLET 1MG [Concomitant]
     Dosage: 1 MILLIGRAM DAILY; IF NECESSARY 1DD1
     Route: 048
  21. LACTULOSE STROOP 670MG/ML (500MG/G) [Concomitant]
     Dosage: 30 ML DAILY;
     Route: 048
  22. CISPLATINE INFUUS [Suspect]
     Active Substance: CISPLATIN
     Indication: EWING^S SARCOMA
     Dosage: 1X CE (CARBOPLATIN, ETOPOSIDE) COURSE BEFORE 2X VIDE COURSE
     Route: 042
     Dates: start: 20150129

REACTIONS (3)
  - Foetal exposure during pregnancy [None]
  - Foetal growth restriction [Fatal]
  - Foetal death [Fatal]

NARRATIVE: CASE EVENT DATE: 20150312
